FAERS Safety Report 8005209-6 (Version None)
Quarter: 2011Q4

REPORT INFORMATION
  Report Type: 
  Country: None (occurrence: None)
  Receive Date: 20111223
  Receipt Date: 20111219
  Transmission Date: 20120403
  Serious: Yes (Death, Other)
  Sender: FDA-Public Use
  Company Number: PHHY2011AU110408

PATIENT
  Sex: Male

DRUGS (1)
  1. AFINITOR [Suspect]
     Indication: RENAL CELL CARCINOMA
     Dosage: 2 WEEKS
     Route: 065
     Dates: start: 20101021

REACTIONS (6)
  - NEOPLASM MALIGNANT [None]
  - POLLAKIURIA [None]
  - EPISTAXIS [None]
  - TOXICITY TO VARIOUS AGENTS [None]
  - NEOPLASM PROGRESSION [None]
  - RASH [None]
